FAERS Safety Report 5424203-2 (Version None)
Quarter: 2007Q3

REPORT INFORMATION
  Report Type: 
  Country: None (occurrence: None)
  Receive Date: 20070731
  Receipt Date: 20070625
  Transmission Date: 20080115
  Serious: No
  Sender: FDA-Public Use
  Company Number: US200705007396

PATIENT
  Age: 80 Year
  Sex: Female

DRUGS (15)
  1. BYETTA [Suspect]
     Indication: TYPE 2 DIABETES MELLITUS
     Dosage: 5 UG, 2/D, SUBCUTANEOUS
     Route: 058
     Dates: start: 20061220, end: 20070118
  2. BYETTA [Suspect]
     Dosage: 10 UG, 2/D, SUBCUTANEOUS
     Route: 058
     Dates: start: 20070119
  3. CEPHALEXIN [Concomitant]
  4. IRON (IRON) TABLET [Concomitant]
  5. PROCRIT [Concomitant]
  6. MAGNESIUM (MAGNESIUM) [Concomitant]
  7. ASPIRIN [Concomitant]
  8. NORVASC [Concomitant]
  9. BUMEX [Concomitant]
  10. AVAPRO [Concomitant]
  11. PAXIL [Concomitant]
  12. LYRICA [Concomitant]
  13. ACTOS [Concomitant]
  14. HECTOROL [Concomitant]
  15. GLYBURIDE [Concomitant]

REACTIONS (11)
  - ABDOMINAL DISCOMFORT [None]
  - ABDOMINAL DISTENSION [None]
  - BLOOD CREATININE ABNORMAL [None]
  - BLOOD GLUCOSE INCREASED [None]
  - CONSTIPATION [None]
  - DECREASED APPETITE [None]
  - DEHYDRATION [None]
  - DIARRHOEA [None]
  - RENAL PAIN [None]
  - SKIN LESION EXCISION [None]
  - WEIGHT INCREASED [None]
